FAERS Safety Report 13142459 (Version 3)
Quarter: 2018Q1

REPORT INFORMATION
  Report Type: Spontaneous
  Country: AT (occurrence: AT)
  Receive Date: 20170123
  Receipt Date: 20180112
  Transmission Date: 20180508
  Serious: Yes (Hospitalization, Other)
  Sender: FDA-Public Use
  Company Number: AT-ELI_LILLY_AND_COMPANY-AT201606003932

PATIENT
  Age: 72 Year
  Sex: Female
  Weight: 66 kg

DRUGS (2)
  1. OLANZAPINE. [Suspect]
     Active Substance: OLANZAPINE
     Indication: SCHIZOPHRENIA
     Dosage: 20 MG, QD
     Route: 048
  2. ZYPADHERA [Suspect]
     Active Substance: OLANZAPINE PAMOATE
     Indication: SCHIZOPHRENIA
     Dosage: 405 MG, SINGLE
     Route: 042

REACTIONS (6)
  - Coma [Recovered/Resolved]
  - Tachycardia [Recovered/Resolved]
  - Post-injection delirium sedation syndrome [Unknown]
  - Incorrect route of drug administration [Unknown]
  - Hypertonia [Recovered/Resolved]
  - Schizophrenia [Unknown]
